FAERS Safety Report 8810345 (Version 2)
Quarter: 2012Q4

REPORT INFORMATION
  Report Type: 
  Country: US (occurrence: US)
  Receive Date: 20120926
  Receipt Date: 20121018
  Transmission Date: 20130627
  Serious: No
  Sender: FDA-Public Use
  Company Number: US-009507513-1209USA007431

PATIENT
  Sex: Female

DRUGS (3)
  1. JANUVIA [Suspect]
     Indication: TYPE 2 DIABETES MELLITUS
     Dosage: 100 mg, qd
     Route: 048
     Dates: start: 201109
  2. GLIPIZIDE [Concomitant]
  3. INSULIN [Concomitant]

REACTIONS (2)
  - Drug ineffective [Unknown]
  - Medication residue [Unknown]
